FAERS Safety Report 4599192-3 (Version None)
Quarter: 2005Q2

REPORT INFORMATION
  Report Type: 
  Country: None (occurrence: None)
  Receive Date: 20050210
  Receipt Date: 20041006
  Transmission Date: 20051028
  Serious: Yes (Death)
  Sender: FDA-Public Use
  Company Number: F(LIT)01/1204

PATIENT
  Age: 66 Year
  Sex: Male

DRUGS (4)
  1. LISINOPRIL [Suspect]
     Indication: MYOCARDIAL ISCHAEMIA
     Dosage: 5 MG, DAILY, ORAL
     Route: 048
  2. COPROXAMOL [Concomitant]
  3. FUROSEMIDE [Concomitant]
  4. IBUPROFEN [Concomitant]

REACTIONS (3)
  - BRONCHOPNEUMONIA [None]
  - GASTROINTESTINAL DISORDER [None]
  - PEMPHIGUS [None]
